FAERS Safety Report 9689073 (Version 1)
Quarter: 2013Q4

REPORT INFORMATION
  Report Type: Spontaneous
  Country: DE (occurrence: None)
  Receive Date: 20131112
  Receipt Date: 20131112
  Transmission Date: 20140711
  Serious: Yes (Hospitalization)
  Sender: FDA-Public Use
  Company Number: FK201304863

PATIENT
  Age: 9 Year
  Sex: Male

DRUGS (4)
  1. CEFOTAXIME [Suspect]
     Indication: NEUROBORRELIOSIS
     Dosage: 2GM, 3 IN 1 D, INTRAVENOUS
     Route: 042
     Dates: start: 20130906, end: 20130919
  2. ACICLOVIR [Suspect]
     Indication: FACIAL PARESIS
     Dosage: 190MG, 3 IN 1 D INTRAVENOUS
     Route: 042
     Dates: start: 20130906, end: 20130912
  3. NOVALGIN (METAMIZOLE SODIUM) [Concomitant]
  4. IBUPROFEN (IBUPROFEN) [Concomitant]

REACTIONS (6)
  - C-reactive protein increased [None]
  - Leukopenia [None]
  - Pyrexia [None]
  - Rash [None]
  - Thrombocytopenia [None]
  - Hepatic enzyme increased [None]
